FAERS Safety Report 5113237-3 (Version None)
Quarter: 2006Q3

REPORT INFORMATION
  Report Type: 
  Country: None (occurrence: None)
  Receive Date: 20060922
  Receipt Date: 20060728
  Transmission Date: 20061208
  Serious: Yes (Death, Hospitalization)
  Sender: FDA-Public Use
  Company Number: US-MERCK-0607USA05645

PATIENT
  Age: 67 Year
  Sex: Male

DRUGS (6)
  1. ZOCOR [Suspect]
     Indication: HYPERCHOLESTEROLAEMIA
     Route: 048
     Dates: start: 20031110
  2. VASOTEC [Concomitant]
     Route: 065
  3. ATENOLOL [Concomitant]
     Route: 065
  4. POTASSIUM CHLORIDE [Concomitant]
     Route: 065
  5. PRAVACHOL [Concomitant]
     Indication: HYPERCHOLESTEROLAEMIA
     Route: 048
     Dates: end: 20031110
  6. ALCOHOL [Suspect]
     Route: 065

REACTIONS (3)
  - ALCOHOLISM [None]
  - HEPATIC FAILURE [None]
  - HEPATITIS C POSITIVE [None]
